FAERS Safety Report 4964213-2 (Version None)
Quarter: 2006Q1

REPORT INFORMATION
  Report Type: 
  Country: None (occurrence: None)
  Receive Date: 20060331
  Receipt Date: 20060319
  Transmission Date: 20060701
  Serious: Yes (Other)
  Sender: FDA-Public Use
  Company Number: 006920

PATIENT
  Age: 24 Year
  Sex: Female

DRUGS (1)
  1. SEASONABLE (LEVONORGESTREL, ETHINYLESTRADIOL) TABLET, 0.15/0.03MG [Suspect]
     Indication: ORAL CONTRACEPTION
     Dosage: 1 TABLET, QD, ORAL
     Route: 048
     Dates: start: 20060123, end: 20060303

REACTIONS (2)
  - EPILEPSY [None]
  - HORMONE LEVEL ABNORMAL [None]
